FAERS Safety Report 18219879 (Version 2)
Quarter: 2025Q2

REPORT INFORMATION
  Report Type: Spontaneous
  Country: CA (occurrence: CA)
  Receive Date: 20200901
  Receipt Date: 20250401
  Transmission Date: 20250717
  Serious: Yes (Hospitalization, Other)
  Sender: ALEXION PHARMACEUTICALS
  Company Number: 2020SF09056

PATIENT
  Age: 44 Year

DRUGS (26)
  1. QUETIAPINE FUMARATE [Suspect]
     Active Substance: QUETIAPINE FUMARATE
     Dosage: 50 MILLIGRAM, QID
  2. QUETIAPINE FUMARATE [Suspect]
     Active Substance: QUETIAPINE FUMARATE
  3. CLOZAPINE [Suspect]
     Active Substance: CLOZAPINE
     Indication: Product used for unknown indication
     Dosage: 400 MILLIGRAM, QD
     Route: 065
  4. CLOZAPINE [Suspect]
     Active Substance: CLOZAPINE
     Dosage: 25 MILLIGRAM, QD
  5. CLOZAPINE [Suspect]
     Active Substance: CLOZAPINE
     Dosage: 200 MILLIGRAM, QD
  6. CLOZAPINE [Suspect]
     Active Substance: CLOZAPINE
     Dosage: 400 MILLIGRAM, QD
  7. CLOZAPINE [Suspect]
     Active Substance: CLOZAPINE
     Dosage: 400 MILLIGRAM, QD
  8. CLOZAPINE [Suspect]
     Active Substance: CLOZAPINE
     Dosage: 350 MILLIGRAM, QD
     Route: 065
  9. CLOZAPINE [Suspect]
     Active Substance: CLOZAPINE
     Dosage: 500 MILLIGRAM, QD
  10. CLOZAPINE [Suspect]
     Active Substance: CLOZAPINE
     Dosage: 200 MILLIGRAM, QD
     Route: 065
  11. CLOZAPINE [Suspect]
     Active Substance: CLOZAPINE
     Indication: Major depression
     Route: 065
  12. CLOZAPINE [Suspect]
     Active Substance: CLOZAPINE
     Route: 065
  13. CLOZAPINE [Suspect]
     Active Substance: CLOZAPINE
     Route: 065
  14. CLOZAPINE [Suspect]
     Active Substance: CLOZAPINE
     Route: 065
  15. CLOZAPINE [Suspect]
     Active Substance: CLOZAPINE
     Dosage: 500 MILLIGRAM, QD
  16. CLOZAPINE [Suspect]
     Active Substance: CLOZAPINE
     Route: 065
  17. CLOZAPINE [Suspect]
     Active Substance: CLOZAPINE
     Route: 065
  18. CLOZAPINE [Suspect]
     Active Substance: CLOZAPINE
     Route: 065
  19. CLOZAPINE [Suspect]
     Active Substance: CLOZAPINE
     Route: 065
  20. CLOZAPINE [Suspect]
     Active Substance: CLOZAPINE
     Route: 065
  21. CLOZAPINE [Suspect]
     Active Substance: CLOZAPINE
     Dosage: 500 MILLIGRAM, QD
     Route: 065
  22. HALOPERIDOL [Suspect]
     Active Substance: HALOPERIDOL
     Indication: Major depression
     Route: 065
  23. OLANZAPINE [Suspect]
     Active Substance: OLANZAPINE
     Indication: Major depression
     Dosage: 20 MILLIGRAM, QD
     Route: 065
  24. RISPERIDONE [Suspect]
     Active Substance: RISPERIDONE
     Indication: Major depression
     Route: 065
  25. VENLAFAXINE [Suspect]
     Active Substance: VENLAFAXINE HYDROCHLORIDE
     Indication: Major depression
     Dosage: 225 MILLIGRAM, QD
     Route: 065
  26. VENLAFAXINE [Suspect]
     Active Substance: VENLAFAXINE HYDROCHLORIDE
     Dosage: 300 MILLIGRAM, QD
     Route: 065

REACTIONS (10)
  - Abdominal pain [Unknown]
  - Constipation [Unknown]
  - Gastric infection [Unknown]
  - Muscle rigidity [Unknown]
  - Product use in unapproved indication [Unknown]
  - Rebound effect [Unknown]
  - Retching [Unknown]
  - Salivary hypersecretion [Unknown]
  - Sedation [Unknown]
  - Pain [Unknown]
